FAERS Safety Report 17817470 (Version 2)
Quarter: 2020Q2

REPORT INFORMATION
  Report Type: Spontaneous
  Country: US (occurrence: US)
  Receive Date: 20200522
  Receipt Date: 20200618
  Transmission Date: 20200714
  Serious: No
  Sender: FDA-Public Use
  Company Number: US-BAYER-2020-092691

PATIENT
  Age: 63 Year
  Sex: Female

DRUGS (1)
  1. CLIMARA [Suspect]
     Active Substance: ESTRADIOL
     Indication: MENOPAUSE
     Dosage: UNK
     Route: 062
     Dates: start: 201806

REACTIONS (7)
  - Multiple use of single-use product [None]
  - Device material issue [None]
  - Application site reaction [None]
  - Product adhesion issue [None]
  - Product adhesion issue [None]
  - Product adhesion issue [None]
  - Wrong technique in device usage process [None]

NARRATIVE: CASE EVENT DATE: 2020
